FAERS Safety Report 8173919-6 (Version None)
Quarter: 2012Q1

REPORT INFORMATION
  Report Type: 
  Country: None (occurrence: None)
  Receive Date: 20120229
  Receipt Date: 20120220
  Transmission Date: 20120608
  Serious: Yes (Hospitalization, Disabling, Other)
  Sender: FDA-Public Use
  Company Number: RU-US-EMD SERONO, INC.-230001J09RUS

PATIENT
  Sex: Female
  Weight: 55 kg

DRUGS (3)
  1. REBIF [Suspect]
     Dates: start: 20080601
  2. REBIF [Suspect]
     Indication: MULTIPLE SCLEROSIS
     Route: 058
     Dates: start: 20080416
  3. REBIF [Suspect]
     Dates: end: 20081110

REACTIONS (22)
  - ATAXIA [None]
  - DIZZINESS [None]
  - PELVIC DISCOMFORT [None]
  - AFFECT LABILITY [None]
  - WRONG TECHNIQUE IN DRUG USAGE PROCESS [None]
  - SUICIDAL IDEATION [None]
  - PARAPARESIS [None]
  - ARTHRALGIA [None]
  - HEADACHE [None]
  - DEPRESSION [None]
  - INSOMNIA [None]
  - TACHYCARDIA [None]
  - RETINAL VASCULAR DISORDER [None]
  - INJECTION SITE INFLAMMATION [None]
  - DRUG INTOLERANCE [None]
  - NAUSEA [None]
  - BONE PAIN [None]
  - PYREXIA [None]
  - MULTIPLE SCLEROSIS [None]
  - CONVULSION [None]
  - DECREASED APPETITE [None]
  - MYALGIA [None]
